FAERS Safety Report 17840994 (Version 1)
Quarter: 2020Q2

REPORT INFORMATION
  Report Type: Report from Study
  Country: GB (occurrence: GB)
  Receive Date: 20200529
  Receipt Date: 20200529
  Transmission Date: 20200714
  Serious: Yes (Hospitalization, Other)
  Sender: FDA-Public Use
  Company Number: GB-PERRIGO-20GB007154

PATIENT
  Age: 28 Year
  Sex: Female

DRUGS (3)
  1. PARACETAMOL [Suspect]
     Active Substance: ACETAMINOPHEN
     Indication: PRODUCT USED FOR UNKNOWN INDICATION
     Dosage: 32 TABLETS
     Route: 048
     Dates: start: 20200407, end: 20200407
  2. LI-LIQUID 101.8MG/ML PL0427/0074 [Suspect]
     Active Substance: LITHIUM CITRATE
     Indication: MANIA
     Dosage: 520MG/ 5ML =150ML
     Route: 048
  3. DENZAPINE [Suspect]
     Active Substance: CLOZAPINE
     Indication: SCHIZOPHRENIA
     Dosage: 850 MG (2 DAYS DOSE)
     Route: 048
     Dates: start: 20200102

REACTIONS (3)
  - Hallucination, auditory [Unknown]
  - Tremor [Unknown]
  - Overdose [Recovered/Resolved]

NARRATIVE: CASE EVENT DATE: 20200407
